FAERS Safety Report 5319960-X (Version None)
Quarter: 2007Q1

REPORT INFORMATION
  Report Type: 
  Country: None (occurrence: None)
  Receive Date: 20070201
  Receipt Date: 20060113
  Transmission Date: 20070707
  Serious: Yes (Other)
  Sender: FDA-Public Use
  Company Number: 2006BH001055

PATIENT
  Sex: Male

DRUGS (13)
  1. DIANEAL [Suspect]
     Indication: RENAL FAILURE CHRONIC
     Dosage: 15.0 ML; 4X A DAY; IP
     Route: 033
  2. ALLOPURINOL [Concomitant]
  3. ACETYLSALICYLIC ACID SRT [Concomitant]
  4. DARVOCET-N 100 [Concomitant]
  5. FERROUS GLUCONATE [Concomitant]
  6. GLUCOSAMINE [Concomitant]
  7. VITAMIN CAP [Concomitant]
  8. OMEPRAZOLE [Concomitant]
  9. PRAVASTATIN [Concomitant]
  10. TUMS [Concomitant]
  11. K-DUR 10 [Concomitant]
  12. TYLENOL [Concomitant]
  13. AMOXICILLIN [Concomitant]

REACTIONS (2)
  - PERITONITIS BACTERIAL [None]
  - STAPHYLOCOCCAL INFECTION [None]
